FAERS Safety Report 25994894 (Version 2)
Quarter: 2025Q4

REPORT INFORMATION
  Report Type: Spontaneous
  Country: US (occurrence: US)
  Receive Date: 20251104
  Receipt Date: 20251223
  Transmission Date: 20260118
  Serious: No
  Sender: MICRO LABS LIMITED
  Company Number: US-MICRO LABS LIMITED-ML2025-05544

PATIENT
  Age: 64 Year
  Sex: Male
  Weight: 86 kg

DRUGS (2)
  1. DORZOLAMIDE HYDROCHLORIDE AND TIMOLOL MALEATE OPHTHALMIC SOLUTION [Suspect]
     Active Substance: DORZOLAMIDE HYDROCHLORIDE\TIMOLOL MALEATE
     Indication: Glaucoma
     Dosage: DOSE: ONE DROP IN THE LEFT EYE
     Route: 047
     Dates: start: 20251010, end: 20251013
  2. Benicar 10 mg [Concomitant]
     Indication: Hypertension

REACTIONS (3)
  - Hordeolum [Recovering/Resolving]
  - Cellulitis [Recovering/Resolving]
  - Product quality issue [Unknown]
